FAERS Safety Report 12388460 (Version 1)
Quarter: 2016Q2

REPORT INFORMATION
  Report Type: Spontaneous
  Country: US (occurrence: US)
  Receive Date: 20160520
  Receipt Date: 20160520
  Transmission Date: 20160815
  Serious: No
  Sender: FDA-Public Use
  Company Number: US-GREER LABORATORIES, INC.-1052526

PATIENT
  Age: 25 Year
  Sex: Male
  Weight: 68.18 kg

DRUGS (51)
  1. MOLDS, RUSTS AND SMUTS, CLADOSPORIUM HERBARUM [Suspect]
     Active Substance: CLADOSPORIUM HERBARUM
     Route: 023
  2. INSECTS (WHOLE BODY) COCKROACH MIX [Suspect]
     Active Substance: BLATELLA GERMANICA\PERIPLANETA AMERICANA
     Route: 023
  3. MOLDS, RUSTS AND SMUTS, BIPOLARIS SOROKINIANA [Suspect]
     Active Substance: COCHLIOBOLUS SATIVUS
     Route: 023
  4. ANIMAL ALLERGENS, MOUSE EPITHELIA, MUS MUSCULUS [Suspect]
     Active Substance: MUS MUSCULUS SKIN
     Route: 023
  5. POLLENS - TREES, MULBERRY, WHITE, MORUS ALBA [Suspect]
     Active Substance: MORUS ALBA POLLEN
     Route: 023
  6. POLLENS - WEEDS AND GARDEN PLANTS, BACCHARIS, BACCHARIS SPP. [Suspect]
     Active Substance: ALLERGENIC EXTRACTS
     Route: 023
  7. MOLDS, RUSTS AND SMUTS, CURVULARIA SPICIFERA [Suspect]
     Active Substance: COCHLIOBOLUS SPICIFER
     Route: 023
  8. POLLENS - WEEDS AND GARDEN PLANTS, SAGEBRUSH, MUGWORT ARTEMISIA VULGARIS [Suspect]
     Active Substance: ARTEMISIA VULGARIS POLLEN
     Route: 023
  9. POLLENS - TREES, GUM, SWEET LIQUIDAMBAR STYRACIFLUA [Suspect]
     Active Substance: LIQUIDAMBAR STYRACIFLUA POLLEN
     Route: 023
  10. POLLENS - TREES, SYCAMORE, AMERICAN (EASTERN) PLATANUS OCCIDENTALLIS [Suspect]
     Active Substance: PLATANUS OCCIDENTALIS POLLEN
     Route: 023
  11. STANDARDIZED BERMUDA GRASS POLLEN [Suspect]
     Active Substance: CYNODON DACTYLON POLLEN
     Route: 023
  12. POLLENS - TREES, BIRCH, RED/RIVER, BETULA NIGRA [Suspect]
     Active Substance: BETULA NIGRA POLLEN
     Route: 023
  13. STANDARDIZED CAT HAIR [Suspect]
     Active Substance: FELIS CATUS HAIR
     Route: 023
  14. POLLENS - TREES, CYPRESS, BALD TAXODIUM DISTICHUM [Suspect]
     Active Substance: TAXODIUM DISTICHUM POLLEN
     Route: 023
  15. POLLENS - TREES, ELM, AMERICAN ULMUS AMERICANA [Suspect]
     Active Substance: ULMUS AMERICANA POLLEN
     Route: 023
  16. POLLENS - TREES, HACKBERRY CELTIS OCCIDENTALIS [Suspect]
     Active Substance: CELTIS OCCIDENTALIS POLLEN
     Route: 023
  17. POLLENS - GRASSES, JOHNSON GRASS SORGHUM HALEPENSE [Suspect]
     Active Substance: SORGHUM HALEPENSE POLLEN
     Route: 023
  18. ANIMAL ALLERGENS, FEATHER MIX [Suspect]
     Active Substance: ANAS PLATYRHYNCHOS FEATHER\ANSER ANSER FEATHER\GALLUS GALLUS FEATHER
     Route: 023
  19. POLLENS - TREES, WILLOW, BLACK SALIX NIGRA [Suspect]
     Active Substance: SALIX NIGRA POLLEN
     Route: 023
  20. POLLENS - TREES, CEDAR, RED JUNIPERUS VIRGINIANA [Suspect]
     Active Substance: JUNIPERUS VIRGINIANA POLLEN
     Route: 023
  21. MOLDS - MOLD MIX 3 [Suspect]
     Active Substance: ALTERNARIA ALTERNATA\CLADOSPORIUM SPHAEROSPERMUM\COCHLIOBOLUS SATIVUS
     Route: 023
  22. ALLERGENIC EXTRACT- MITE, DERMATOPHAGOIDES FARINAE [Suspect]
     Active Substance: DERMATOPHAGOIDES FARINAE
     Route: 023
  23. MOLDS, RUSTS AND SMUTS, PENICILLIUM NOTATUM [Suspect]
     Active Substance: PENICILLIUM CHRYSOGENUM VAR. CHRYSOGENUM
     Route: 023
  24. POLLENS - WEEDS AND GARDEN PLANTS, MARSHELDER, TRUE/ROUGH, IVA ANNUA [Suspect]
     Active Substance: IVA ANNUA POLLEN
     Route: 023
  25. MOLDS, RUSTS AND SMUTS, GS ALTERNARIA/HORMODENDRUM MIX [Suspect]
     Active Substance: ALTERNARIA ALTERNATA\CLADOSPORIUM SPHAEROSPERMUM
     Indication: HYPERSENSITIVITY
     Route: 023
  26. POLLENS - TREES, BAYBERRY/WAX MYRTLE, MORELLA CERIFERA [Suspect]
     Active Substance: MORELLA CERIFERA POLLEN
     Route: 023
  27. POLLENS - WEEDS AND GARDEN PLANTS, DOG FENNEL EUPATORIUM CAPILLIFOLIUM [Suspect]
     Active Substance: EUPATORIUM CAPILLIFOLIUM POLLEN
     Route: 023
  28. MOLDS, RUSTS AND SMUTS, EPICOCCUM NIGRUM [Suspect]
     Active Substance: EPICOCCUM NIGRUM
     Route: 023
  29. POLLENS - WEEDS AND GARDEN PLANTS, NETTLE URTICA DIOICA [Suspect]
     Active Substance: URTICA DIOICA POLLEN
     Route: 023
  30. POLLENS - TREES, GS PINE MIX [Suspect]
     Active Substance: PINUS ECHINATA POLLEN\PINUS STROBUS POLLEN\PINUS TAEDA POLLEN
     Route: 023
  31. POLLENS - WEEDS AND GARDEN PLANTS, RAGWEED, MIXED AMBROSIA [Suspect]
     Active Substance: AMBROSIA ARTEMISIIFOLIA POLLEN\AMBROSIA TRIFIDA POLLEN
     Route: 023
  32. MOLDS, RUSTS AND SMUTS, GS RHIZOPUS MIX [Suspect]
     Active Substance: RHIZOPUS ARRHIZUS VAR. ARRHIZUS\RHIZOPUS STOLONIFER
     Route: 023
  33. STANDARDIZED SWEET VERNAL GRASS [Suspect]
     Active Substance: ANTHOXANTHUM ODORATUM POLLEN
     Route: 023
  34. POLLENS - GRASSES, VELVETGRASS, HOLCUS LANATUS [Suspect]
     Active Substance: HOLCUS LANATUS POLLEN
     Route: 023
  35. POLLENS - TREES, WALNUT, BLACK JUGLANS NIGRA [Suspect]
     Active Substance: JUGLANS NIGRA POLLEN
     Route: 023
  36. MOLDS, RUSTS AND SMUTS, ASPERGILLUS FUMIGATUS [Suspect]
     Active Substance: ASPERGILLUS FUMIGATUS
     Route: 023
  37. POLLENS - TREES, COTTONWOOD, COMMON POPULUS DELTOIDES [Suspect]
     Active Substance: POPULUS DELTOIDES POLLEN
     Route: 023
  38. POLLENS - GRASSES, COUCH/QUACK GRASS, ELYMUS REPENS [Suspect]
     Active Substance: ELYMUS REPENS POLLEN
     Route: 023
  39. POLLENS - TREES, BOXELDER/MAPLE MIX [Suspect]
     Active Substance: ACER NEGUNDO POLLEN\ACER RUBRUM POLLEN\ACER SACCHARUM POLLEN
     Route: 023
  40. MOLDS, RUSTS AND SMUTS, GS MUCOR MIX [Suspect]
     Active Substance: MUCOR CIRCINELLOIDES F. LUSITANICUS\MUCOR PLUMBEUS
     Route: 023
  41. ALLERGENIC EXTRACT- MITE, DERMATOPHAGOIDES PTERONYSSINUS [Suspect]
     Active Substance: DERMATOPHAGOIDES PTERONYSSINUS
     Route: 023
  42. ASH MIXTURE [Suspect]
     Active Substance: FRAXINUS AMERICANA POLLEN\FRAXINUS PENNSYLVANICA POLLEN
     Route: 023
  43. MOLDS, RUSTS AND SMUTS, AUREOBASIDIUM PULLULANS [Suspect]
     Active Substance: AUREOBASIDIUM PULLULANS VAR. PULLUTANS
     Route: 023
  44. POLLENS - WEEDS, DOCK/SORREL MIX [Suspect]
     Active Substance: RUMEX ACETOSELLA POLLEN\RUMEX CRISPUS POLLEN
     Route: 023
  45. ANIMAL ALLERGENS, DOG EPITHELIA, CANIS FAMILIARIS [Suspect]
     Active Substance: CANIS LUPUS FAMILIARIS SKIN
     Route: 023
  46. ANIMAL ALLERGENS, MOUSE EPITHELIA, MUS MUSCULUS [Suspect]
     Active Substance: MUS MUSCULUS SKIN
     Route: 023
  47. STANDARDIZED TIMOTHY GRASS [Suspect]
     Active Substance: PHLEUM PRATENSE POLLEN
     Route: 023
  48. MOLDS, RUSTS AND SMUTS, GS FUSARIUM MIX [Suspect]
     Active Substance: GIBBERELLA FUJIKUROI\HAEMATONECTRIA HAEMATOCOCCA
     Route: 023
  49. HICKORY MIX, PIGNUT/SHAGBARK/SHELLBARK/WHITE POLLEN [Suspect]
     Active Substance: CARYA GLABRA POLLEN\CARYA LACINIOSA POLLEN\CARYA OVATA POLLEN\CARYA TOMENTOSA POLLEN
     Route: 023
  50. POLLENS - TREES, GS EASTERN OAK MIX [Suspect]
     Active Substance: QUERCUS ALBA POLLEN\QUERCUS RUBRA POLLEN\QUERCUS VELUTINA POLLEN
     Route: 023
  51. STANDARDIZED PERENNIAL RYEGRASS GRASS POLLEN [Suspect]
     Active Substance: LOLIUM PERENNE POLLEN
     Route: 023

REACTIONS (3)
  - Pruritus [Recovered/Resolved]
  - Ocular hyperaemia [Recovered/Resolved]
  - Chest discomfort [Recovered/Resolved]

NARRATIVE: CASE EVENT DATE: 20160419
